FAERS Safety Report 7201492-5 (Version None)
Quarter: 2010Q4

REPORT INFORMATION
  Report Type: 
  Country: None (occurrence: None)
  Receive Date: 20101229
  Receipt Date: 20100416
  Transmission Date: 20110411
  Serious: Yes (Hospitalization, Other)
  Sender: FDA-Public Use
  Company Number: US-RANBAXY-2010US-33613

PATIENT

DRUGS (13)
  1. GANCICLOVIR [Suspect]
     Indication: ANTIVIRAL PROPHYLAXIS
     Dosage: 500 MG, QD
     Route: 048
     Dates: start: 20080331, end: 20080627
  2. ACYCLOVIR SODIUM [Suspect]
     Indication: ANTIVIRAL PROPHYLAXIS
     Dosage: 400 MG, BID
     Route: 048
     Dates: start: 20080331, end: 20080627
  3. MARIBAVIR (PLACEBO) [Suspect]
     Indication: ANTIVIRAL PROPHYLAXIS
     Dosage: 100 MG, BID
     Route: 048
     Dates: start: 20080331, end: 20080627
  4. PROGAF [Suspect]
     Indication: TRANSPLANT REJECTION
     Dosage: UNK, UNK
     Route: 065
  5. ACTIGALL [Concomitant]
     Indication: CHOLELITHIASIS
     Dosage: UNK, UNK
     Route: 065
  6. BACTRIM [Concomitant]
     Indication: ANTIBIOTIC PROPHYLAXIS
     Dosage: UNK, UNK
     Route: 065
  7. CELLCEPT [Concomitant]
     Indication: TRANSPLANT REJECTION
     Route: 065
  8. DIFLUCAN [Concomitant]
     Indication: ANTIFUNGAL PROPHYLAXIS
     Dosage: UNK, UNK
     Route: 065
  9. EPOGEN [Concomitant]
     Indication: ANAEMIA OF CHRONIC DISEASE
     Dosage: UNK, UNK
     Route: 065
  10. LASIX [Concomitant]
     Indication: DIURETIC THERAPY
     Dosage: UNK, UNK
     Route: 065
  11. PREDNISONE [Concomitant]
     Indication: TRANSPLANT REJECTION
     Dosage: UNK, UNK
     Route: 065
  12. PROTONIX [Concomitant]
     Indication: PROPHYLAXIS AGAINST GASTROINTESTINAL ULCER
     Dosage: UNK, UNK
     Route: 065
  13. VICODIN [Concomitant]
     Indication: PAIN
     Dosage: UNK, UNK
     Route: 065

REACTIONS (6)
  - ASTHENIA [None]
  - CYTOMEGALOVIRUS VIRAEMIA [None]
  - DRUG INEFFECTIVE [None]
  - HYPERKALAEMIA [None]
  - PNEUMONIA [None]
  - PYREXIA [None]
